FAERS Safety Report 9217122 (Version 1)
Quarter: 2013Q2

REPORT INFORMATION
  Report Type: Spontaneous
  Country: FR (occurrence: FR)
  Receive Date: 20130408
  Receipt Date: 20130408
  Transmission Date: 20140414
  Serious: Yes (Hospitalization)
  Sender: FDA-Public Use
  Company Number: FR-JNJFOC-20130318355

PATIENT
  Age: 70 Year
  Sex: Male

DRUGS (8)
  1. XARELTO [Suspect]
     Indication: CEREBROVASCULAR ACCIDENT PROPHYLAXIS
     Route: 048
     Dates: start: 20121227, end: 20130116
  2. BIPRETERAX [Concomitant]
     Route: 048
  3. GAVISCON (ANTACID) [Concomitant]
     Route: 048
  4. LASILIX [Concomitant]
     Route: 048
  5. TRIMEBUTINE [Concomitant]
     Route: 048
  6. SOTALEX [Concomitant]
     Route: 048
  7. PANTOPRAZOLE [Concomitant]
     Route: 048
  8. SIMVASTATINE [Concomitant]
     Route: 048

REACTIONS (2)
  - Ischaemic stroke [Recovering/Resolving]
  - Drug ineffective [Unknown]
